FAERS Safety Report 25776656 (Version 1)
Quarter: 2025Q3

REPORT INFORMATION
  Report Type: Spontaneous
  Country: US (occurrence: US)
  Receive Date: 20250909
  Receipt Date: 20250909
  Transmission Date: 20251020
  Serious: No
  Sender: DOMPE FARMACEUTICI
  Company Number: US-FARMAPROD-202409-3175

PATIENT
  Sex: Female
  Weight: 90.7 kg

DRUGS (5)
  1. OXERVATE [Suspect]
     Active Substance: CENEGERMIN-BKBJ
     Indication: Neurotrophic keratopathy
     Route: 047
  2. MIEBO [Concomitant]
     Active Substance: PERFLUOROHEXYLOCTANE
  3. PANTOPRAZOLE SODIUM [Concomitant]
     Active Substance: PANTOPRAZOLE SODIUM
  4. CELECOXIB [Concomitant]
     Active Substance: CELECOXIB
  5. QELBREE [Concomitant]
     Active Substance: VILOXAZINE HYDROCHLORIDE

REACTIONS (1)
  - Eyelid pain [Unknown]
